FAERS Safety Report 11657730 (Version 1)
Quarter: 2015Q4

REPORT INFORMATION
  Report Type: Spontaneous
  Country: US (occurrence: US)
  Receive Date: 20151023
  Receipt Date: 20151023
  Transmission Date: 20160304
  Serious: No
  Sender: FDA-Public Use
  Company Number: US-ABBVIE-15P-163-1354096-00

PATIENT
  Sex: Female

DRUGS (1)
  1. LUPRON DEPOT [Suspect]
     Active Substance: LEUPROLIDE ACETATE
     Indication: ENDOMETRIOSIS
     Route: 050
     Dates: start: 2005, end: 2005

REACTIONS (4)
  - Dry skin [Unknown]
  - Bone pain [Unknown]
  - Alopecia [Unknown]
  - Hot flush [Unknown]

NARRATIVE: CASE EVENT DATE: 2005
